FAERS Safety Report 8072061-2 (Version None)
Quarter: 2011Q4

REPORT INFORMATION
  Report Type: 
  Country: None (occurrence: None)
  Receive Date: 20111221
  Receipt Date: 20110720
  Transmission Date: 20120403
  Serious: Yes (Other)
  Sender: FDA-Public Use
  Company Number: PHHY2011US66152

PATIENT
  Age: 21 Year
  Sex: Male
  Weight: 64.9 kg

DRUGS (1)
  1. EXJADE [Suspect]
     Indication: SICKLE CELL ANAEMIA
     Dosage: 100 MG, QD, ORAL
     Route: 048
     Dates: start: 20090317

REACTIONS (1)
  - LIVER DISORDER [None]
